FAERS Safety Report 7568443-5 (Version None)
Quarter: 2011Q2

REPORT INFORMATION
  Report Type: 
  Country: None (occurrence: None)
  Receive Date: 20110617
  Receipt Date: 20110603
  Transmission Date: 20111010
  Serious: Yes (Death)
  Sender: FDA-Public Use
  Company Number: 2011-083

PATIENT
  Age: 59 Year
  Sex: Female

DRUGS (4)
  1. FAZACLO ODT [Suspect]
     Indication: ABNORMAL BEHAVIOUR
     Dosage: 62.5 MG, QD, ORAL
     Route: 048
     Dates: start: 20070811
  2. ARICEPT [Concomitant]
  3. LEXAPRO [Concomitant]
  4. THORAZINE /00011901/ (CHLORPROMAZINE) [Concomitant]

REACTIONS (1)
  - PNEUMONIA ASPIRATION [None]
